FAERS Safety Report 20569815 (Version 3)
Quarter: 2022Q1

REPORT INFORMATION
  Report Type: Spontaneous
  Country: US (occurrence: None)
  Receive Date: 20220309
  Receipt Date: 20220331
  Transmission Date: 20220424
  Serious: No
  Sender: FDA-Public Use
  Company Number: 2022A067048

PATIENT
  Sex: Male

DRUGS (1)
  1. BYDUREON BCISE [Suspect]
     Active Substance: EXENATIDE
     Indication: Ill-defined disorder
     Route: 058

REACTIONS (3)
  - Blood glucose increased [Unknown]
  - Device issue [Unknown]
  - Refusal of treatment by patient [Unknown]
